FAERS Safety Report 24771839 (Version 1)
Quarter: 2024Q4

REPORT INFORMATION
  Report Type: Spontaneous
  Country: DE (occurrence: DE)
  Receive Date: 20241224
  Receipt Date: 20241224
  Transmission Date: 20250114
  Serious: Yes (Death, Other)
  Sender: NOVARTIS
  Company Number: DE-002147023-NVSC2024DE243207

PATIENT
  Age: 72 Year
  Sex: Female

DRUGS (8)
  1. LETROZOLE [Suspect]
     Active Substance: LETROZOLE
     Indication: Breast cancer
     Dosage: 2.5 MG, QD
     Route: 048
     Dates: start: 20230403
  2. PALBOCICLIB [Suspect]
     Active Substance: PALBOCICLIB
     Indication: Breast cancer
     Dosage: 125 MG, QD (125 MG, DAILY FROM DAY 1 TO DAY 21 EVERY 28 DAY CYCLE)
     Route: 048
     Dates: start: 20230403, end: 20230618
  3. PALBOCICLIB [Suspect]
     Active Substance: PALBOCICLIB
     Dosage: 100 MG, QD (100 MG, DAILY FROM DAY 1 TO DAY 21 EVERY 28 DAY CYCLE)
     Route: 048
     Dates: start: 20230703
  4. PALBOCICLIB [Suspect]
     Active Substance: PALBOCICLIB
     Dosage: 100 MG, QD (100 MG, DAILY FROM DAY 1 TO DAY 21 EVERY 28 DAY CYCLE)
     Route: 048
     Dates: start: 20240923
  5. METFORMIN [Concomitant]
     Active Substance: METFORMIN HYDROCHLORIDE
     Indication: Prophylaxis
     Dosage: UNK
     Route: 048
  6. CANDESARTAN [Concomitant]
     Active Substance: CANDESARTAN
     Indication: Prophylaxis
     Dosage: UNK
     Route: 048
  7. METOPROLOL [Concomitant]
     Active Substance: METOPROLOL
     Indication: Prophylaxis
     Dosage: UNK
     Route: 048
  8. ZOLEDRONIC ACID [Concomitant]
     Active Substance: ZOLEDRONIC ACID
     Indication: Prophylaxis
     Dosage: UNK
     Route: 042
     Dates: start: 20230623

REACTIONS (1)
  - Death [Fatal]

NARRATIVE: CASE EVENT DATE: 20240928
